FAERS Safety Report 5228552-2 (Version None)
Quarter: 2007Q1

REPORT INFORMATION
  Report Type: 
  Country: None (occurrence: None)
  Receive Date: 20070205
  Receipt Date: 20070130
  Transmission Date: 20070707
  Serious: Yes (Hospitalization)
  Sender: FDA-Public Use
  Company Number: PHNU2006DE03849

PATIENT
  Age: 56 Year
  Sex: Male

DRUGS (6)
  1. SANDIMMUNE [Suspect]
     Indication: CORNEAL TRANSPLANT
     Dosage: UNK, UNK
     Route: 048
     Dates: start: 20040101
  2. ASCORBIC ACID (VIT C CONTAINING FRUITS) [Suspect]
     Route: 048
  3. TIMO [Concomitant]
  4. TRUSOPT [Concomitant]
  5. INFLANEFRAN [Concomitant]
  6. HYLO LASOP [Concomitant]

REACTIONS (4)
  - CORNEAL GRAFT REJECTION [None]
  - CORNEAL TRANSPLANT [None]
  - DRUG INTERACTION [None]
  - DRUG LEVEL FLUCTUATING [None]
